FAERS Safety Report 9149318 (Version 1)
Quarter: 2013Q1

REPORT INFORMATION
  Report Type: Spontaneous
  Country: US (occurrence: None)
  Receive Date: 20130129
  Receipt Date: 20130129
  Transmission Date: 20140127
  Serious: Yes (Hospitalization)
  Sender: FDA-Public Use
  Company Number: 2013AP000520

PATIENT
  Age: 66 Year
  Sex: Female

DRUGS (12)
  1. PAROXETINE HCL TABLETS [Suspect]
     Indication: PRODUCT USED FOR UNKNOWN INDICATION
  2. IFOSFAMIDE [Suspect]
     Indication: NON-HODGKIN^S LYMPHOMA RECURRENT
  3. METHYLTHIONINIUM CHLORIDE [Suspect]
     Indication: ENCEPHALOPATHY
     Route: 042
  4. CYCLOPHOSPHAMIDE [Concomitant]
  5. DOXORUBICIN [Concomitant]
  6. VINCRISTINE [Concomitant]
  7. PREDNISONE [Concomitant]
  8. CARBOPLATIN [Concomitant]
  9. ETOPOSIDE [Concomitant]
  10. BUPROPION [Suspect]
  11. DEXAMETRASONE [Concomitant]
  12. APREPITANT [Concomitant]

REACTIONS (15)
  - Toxic encephalopathy [None]
  - Serotonin syndrome [None]
  - Lethargy [None]
  - Mydriasis [None]
  - Aspartate aminotransferase increased [None]
  - Alanine aminotransferase increased [None]
  - Acidosis [None]
  - Blood urea increased [None]
  - Blood creatinine increased [None]
  - Infection [None]
  - Deep vein thrombosis [None]
  - Aspiration [None]
  - Disease recurrence [None]
  - Pleural effusion [None]
  - Pulmonary oedema [None]
